FAERS Safety Report 6395533-5 (Version None)
Quarter: 2009Q4

REPORT INFORMATION
  Report Type: 
  Country: None (occurrence: None)
  Receive Date: 20091009
  Receipt Date: 20090930
  Transmission Date: 20100525
  Serious: Yes (Other)
  Sender: FDA-Public Use
  Company Number: CA-JNJFOC-20091000369

PATIENT
  Sex: Male
  Weight: 101.5 kg

DRUGS (5)
  1. REMICADE [Suspect]
     Dosage: TOTAL OF 24 INFUSIONS
     Route: 042
     Dates: start: 20070630
  2. REMICADE [Suspect]
     Indication: ANKYLOSING SPONDYLITIS
     Route: 042
     Dates: start: 20070630
  3. TYLENOL (CAPLET) [Concomitant]
     Indication: PREMEDICATION
     Route: 048
  4. SOLU-CORTEF [Concomitant]
     Indication: PREMEDICATION
     Route: 042
  5. BENADRYL [Concomitant]
     Indication: PREMEDICATION
     Route: 042

REACTIONS (3)
  - HYPERTENSION [None]
  - INFUSION RELATED REACTION [None]
  - TREMOR [None]
